FAERS Safety Report 14238078 (Version 2)
Quarter: 2017Q4

REPORT INFORMATION
  Report Type: Spontaneous
  Country: FR (occurrence: FR)
  Receive Date: 20171130
  Receipt Date: 20171229
  Transmission Date: 20180321
  Serious: Yes (Other)
  Sender: FDA-Public Use
  Company Number: FR-MERCK KGAA-2036348

PATIENT
  Age: 81 Year
  Sex: Female

DRUGS (4)
  1. DOLIPRANE [Concomitant]
     Active Substance: ACETAMINOPHEN
  2. TRANXENE [Concomitant]
     Active Substance: CLORAZEPATE DIPOTASSIUM
  3. AERIUS [Concomitant]
     Active Substance: DESLORATADINE
  4. NOVOTHYROX [Suspect]
     Active Substance: LEVOTHYROXINE SODIUM
     Indication: AUTOIMMUNE THYROIDITIS
     Dates: start: 201704

REACTIONS (24)
  - Suicidal ideation [None]
  - Amnesia [None]
  - Blood iron decreased [None]
  - Diarrhoea [None]
  - Photophobia [None]
  - Thyroxine increased [Recovered/Resolved]
  - Insomnia [None]
  - Depression [None]
  - Anaemia [None]
  - Loss of consciousness [None]
  - Vomiting [None]
  - Anxiety [None]
  - Malaise [None]
  - Feeling of body temperature change [None]
  - Arthralgia [None]
  - Diabetes mellitus [None]
  - Hypertrichosis [None]
  - Fall [None]
  - Vertigo [None]
  - Hyperglycaemia [None]
  - Aphasia [None]
  - Weight increased [None]
  - Tremor [None]
  - C-reactive protein increased [None]

NARRATIVE: CASE EVENT DATE: 2017
